FAERS Safety Report 19061480 (Version 2)
Quarter: 2022Q2

REPORT INFORMATION
  Report Type: Report from Study
  Country: US (occurrence: US)
  Receive Date: 20210326
  Receipt Date: 20220527
  Transmission Date: 20220721
  Serious: Yes (Hospitalization)
  Sender: FDA-Public Use
  Company Number: US-PFIZER INC-2021314499

PATIENT

DRUGS (1)
  1. KETAMINE HYDROCHLORIDE [Suspect]
     Active Substance: KETAMINE HYDROCHLORIDE
     Indication: Sickle cell anaemia with crisis
     Dosage: 3 UG/KG/MIN (RANGE OF 2-5 UG/KG/MIN)

REACTIONS (1)
  - Acute chest syndrome [Unknown]
